FAERS Safety Report 16465146 (Version 2)
Quarter: 2019Q3

REPORT INFORMATION
  Report Type: Spontaneous
  Country: US (occurrence: US)
  Receive Date: 20190621
  Receipt Date: 20190923
  Transmission Date: 20191004
  Serious: Yes (Other)
  Sender: FDA-Public Use
  Company Number: US-PFIZER INC-2019267652

PATIENT
  Age: 56 Year
  Sex: Female

DRUGS (9)
  1. PEPCID COMPLETE [Concomitant]
     Active Substance: CALCIUM CARBONATE\FAMOTIDINE\MAGNESIUM HYDROXIDE
     Dosage: UNK
     Dates: start: 2007
  2. PROTONIX [Suspect]
     Active Substance: PANTOPRAZOLE SODIUM
     Indication: CEREBROVASCULAR ACCIDENT
     Dosage: UNK UNK, 1X/DAY
     Dates: start: 200705
  3. ASPIRIN. [Concomitant]
     Active Substance: ASPIRIN
     Indication: CARDIAC DISORDER
     Dosage: UNK
  4. REPAGLINIDE. [Concomitant]
     Active Substance: REPAGLINIDE
     Indication: BLOOD GLUCOSE DECREASED
     Dosage: UNK
  5. PREVACID [Suspect]
     Active Substance: LANSOPRAZOLE
     Indication: CEREBROVASCULAR ACCIDENT
     Dosage: UNK UNK, 1X/DAY
     Dates: start: 200705
  6. PRILOSEC [Suspect]
     Active Substance: OMEPRAZOLE MAGNESIUM
     Indication: CEREBROVASCULAR ACCIDENT
     Dosage: UNK UNK, 1X/DAY
     Dates: start: 200705
  7. AMARIL [Concomitant]
     Indication: BLOOD PRESSURE ABNORMAL
     Dosage: UNK
     Dates: start: 1998, end: 2009
  8. NEXIUM [Suspect]
     Active Substance: ESOMEPRAZOLE MAGNESIUM
     Indication: CEREBROVASCULAR ACCIDENT
     Dosage: UNK UNK, 2X/DAY
     Dates: start: 200705
  9. LOSARTAN POTASSIUM. [Concomitant]
     Active Substance: LOSARTAN POTASSIUM
     Indication: RENAL DISORDER
     Dosage: UNK

REACTIONS (7)
  - Diabetes mellitus [Not Recovered/Not Resolved]
  - Nephropathy [Not Recovered/Not Resolved]
  - Chronic kidney disease [Not Recovered/Not Resolved]
  - Hypertension [Not Recovered/Not Resolved]
  - Renal failure [Not Recovered/Not Resolved]
  - Cardiac failure [Not Recovered/Not Resolved]
  - Cardiac disorder [Unknown]

NARRATIVE: CASE EVENT DATE: 2007
